FAERS Safety Report 9384202 (Version 1)
Quarter: 2013Q3

REPORT INFORMATION
  Report Type: Spontaneous
  Country: US (occurrence: None)
  Receive Date: 20130702
  Receipt Date: 20130702
  Transmission Date: 20140515
  Serious: No
  Sender: FDA-Public Use
  Company Number: None

PATIENT
  Age: 44 Year
  Sex: Male
  Weight: 79.38 kg

DRUGS (1)
  1. LARIAM [Suspect]
     Indication: MALARIA PROPHYLAXIS
     Route: 048
     Dates: start: 20021127, end: 20030512

REACTIONS (9)
  - Neurotoxicity [None]
  - Polyneuropathy [None]
  - Nightmare [None]
  - Anxiety [None]
  - Drug interaction [None]
  - Photophobia [None]
  - Panic attack [None]
  - Abnormal dreams [None]
  - Insomnia [None]
